FAERS Safety Report 6685432-3 (Version None)
Quarter: 2010Q2

REPORT INFORMATION
  Report Type: 
  Country: None (occurrence: None)
  Receive Date: 20100419
  Receipt Date: 20100412
  Transmission Date: 20101027
  Serious: Yes (Hospitalization, Other)
  Sender: FDA-Public Use
  Company Number: US-ASTRAZENECA-2007UW18680

PATIENT
  Age: 47 Year
  Sex: Female
  Weight: 129.3 kg

DRUGS (27)
  1. SEROQUEL [Suspect]
     Indication: DEPRESSION
     Dosage: 25-100 MG
     Route: 048
     Dates: start: 19980320, end: 20040601
  2. ZYPREXA [Concomitant]
     Indication: DEPRESSION
  3. EFFEXOR XR [Concomitant]
     Route: 048
  4. TRAZODONE [Concomitant]
     Dosage: STREGTH-50 MG - 150 MG
     Route: 048
  5. HYTRIN [Concomitant]
     Indication: HYPERTENSION
     Dosage: 1 MG - 2 MG AT NIGHT
     Route: 048
  6. GLUCOTROL XL [Concomitant]
     Dosage: STRENGTH-5 MG - 10 MG
     Route: 048
  7. CARBATROL [Concomitant]
     Indication: CONVULSION
     Dosage: 200 MG - 300 MG, THREE TIMES A DAY
     Route: 048
  8. NEURONTIN [Concomitant]
     Indication: POST-TRAUMATIC EPILEPSY
     Dosage: 300 MG - 400 MG, THREE TIMES A DAY
     Route: 048
     Dates: start: 20070803
  9. NEURONTIN [Concomitant]
     Dosage: 800 MG, TWO TIMES A DAY, THREE TIMESA DAY
     Route: 048
  10. LIPITOR [Concomitant]
     Indication: HYPERCHOLESTEROLAEMIA
     Dosage: 5 MG - 20 MG, DAILY
     Route: 048
  11. GLUCOPHAGE [Concomitant]
     Route: 048
  12. GLUCOPHAGE [Concomitant]
     Route: 048
  13. ESTRATEST [Concomitant]
     Dosage: 1.25 MG - 2.5 MG, DAILY
     Route: 048
  14. ALBUTEROL [Concomitant]
     Route: 055
  15. GLUCOVANCE [Concomitant]
     Dosage: 500 MG, DAILY, TWO TIMES A DAY
     Route: 048
  16. METHOCARBAMOL [Concomitant]
     Dosage: 500 MG, DAILY, TWO TIMES A DAY
     Route: 048
  17. FLONASE [Concomitant]
     Route: 045
  18. FLUOXETINE [Concomitant]
     Route: 048
  19. AMBIEN [Concomitant]
     Dosage: 10 MG - 12.5 MG, EVERY DAY BEDTIME
     Route: 048
  20. AMBIEN [Concomitant]
     Route: 048
  21. INSULIN [Concomitant]
     Indication: DIABETES MELLITUS
     Dosage: 4 UNITS
     Route: 058
  22. HEPARIN [Concomitant]
     Dosage: 1000 TO 5000 UNITS
     Route: 065
  23. ASPIRIN [Concomitant]
     Dosage: 325 MG - 5000 MG, DAILY
     Route: 048
  24. DILTIAZEM HCL [Concomitant]
     Route: 048
  25. CANDESARTAN [Concomitant]
     Route: 048
  26. ALPRAZOLAM [Concomitant]
     Dosage: 0.5 MG - 1 MG
     Route: 048
  27. PROPOXYPHENE HCL [Concomitant]
     Route: 048

REACTIONS (9)
  - APHASIA [None]
  - BLOOD GLUCOSE INCREASED [None]
  - CEREBROVASCULAR ACCIDENT [None]
  - DIABETES MELLITUS [None]
  - DYSARTHRIA [None]
  - HEMIPARESIS [None]
  - MYOCARDIAL INFARCTION [None]
  - TRANSIENT ISCHAEMIC ATTACK [None]
  - TYPE 1 DIABETES MELLITUS [None]
